FAERS Safety Report 4914999-8 (Version None)
Quarter: 2006Q1

REPORT INFORMATION
  Report Type: 
  Country: None (occurrence: None)
  Receive Date: 20060215
  Receipt Date: 20060215
  Transmission Date: 20060701
  Serious: Yes (Hospitalization)
  Sender: FDA-Public Use
  Company Number: None

PATIENT
  Sex: Male
  Weight: 102.0593 kg

DRUGS (8)
  1. COUMADIN [Suspect]
     Indication: ARRHYTHMIA
     Dosage: 5 MG PO QD
     Route: 048
  2. ATENOLOL [Concomitant]
  3. LOVASTATIN [Concomitant]
  4. LISINOPRIL [Concomitant]
  5. PROSCAR [Concomitant]
  6. ASPIRIN [Concomitant]
  7. FISH OIL [Concomitant]
  8. FLOMAX [Concomitant]

REACTIONS (1)
  - EPISTAXIS [None]
